FAERS Safety Report 7722359 (Version 4)
Quarter: 2014Q1

REPORT INFORMATION
  Report Type: Spontaneous
  Country: JP (occurrence: JP)
  Receive Date: 20101220
  Receipt Date: 20140120
  Transmission Date: 20141002
  Serious: Yes (Death, Other)
  Sender: FDA-Public Use
  Company Number: PHHY2010JP85667

PATIENT
  Age: 12 Year
  Sex: Male

DRUGS (5)
  1. NEORAL [Suspect]
     Indication: HISTIOCYTOSIS HAEMATOPHAGIC
     Route: 065
  2. DEXAMETHASONE [Suspect]
  3. RITUXIMAB [Concomitant]
     Indication: BURKITT^S LYMPHOMA
  4. METHOTREXATE [Concomitant]
     Indication: BURKITT^S LYMPHOMA
  5. ETOPOSIDE [Concomitant]

REACTIONS (5)
  - Klebsiella sepsis [Fatal]
  - Burkitt^s lymphoma recurrent [Unknown]
  - Convulsion [Unknown]
  - Nervous system disorder [Unknown]
  - Drug ineffective [Unknown]
